FAERS Safety Report 16310967 (Version 1)
Quarter: 2019Q2

REPORT INFORMATION
  Report Type: Report from Study
  Country: US (occurrence: US)
  Receive Date: 20190514
  Receipt Date: 20190514
  Transmission Date: 20190711
  Serious: Yes (Other)
  Sender: FDA-Public Use
  Company Number: US-UCBSA-2019013897

PATIENT
  Age: 74 Year
  Sex: Female

DRUGS (1)
  1. CERTOLIZUMAB PEGOL [Suspect]
     Active Substance: CERTOLIZUMAB PEGOL
     Indication: PSORIATIC ARTHROPATHY
     Dosage: 400 MILLIGRAM, EV 4 WEEKS
     Route: 058
     Dates: start: 201903

REACTIONS (5)
  - Crohn^s disease [Unknown]
  - Therapeutic response shortened [Unknown]
  - Upper respiratory tract infection [Not Recovered/Not Resolved]
  - Cellulitis [Not Recovered/Not Resolved]
  - Ear infection [Not Recovered/Not Resolved]

NARRATIVE: CASE EVENT DATE: 201903
